FAERS Safety Report 25986561 (Version 1)
Quarter: 2025Q4

REPORT INFORMATION
  Report Type: Spontaneous
  Country: US (occurrence: US)
  Receive Date: 20251031
  Receipt Date: 20251031
  Transmission Date: 20260118
  Serious: Yes (Other)
  Sender: NOVO NORDISK
  Company Number: US-NOVOPROD-1552746

PATIENT
  Sex: Male

DRUGS (1)
  1. OZEMPIC [Suspect]
     Active Substance: SEMAGLUTIDE
     Indication: Diabetes mellitus
     Dosage: UNK (TOWARDS TAKING THE FULL DOSE)
     Dates: start: 202001, end: 20200403

REACTIONS (2)
  - Dialysis [Unknown]
  - Renal transplant [Unknown]

NARRATIVE: CASE EVENT DATE: 20200101
